FAERS Safety Report 19769528 (Version 2)
Quarter: 2021Q3

REPORT INFORMATION
  Report Type: Report from Study
  Country: US (occurrence: US)
  Receive Date: 20210831
  Receipt Date: 20210927
  Transmission Date: 20211014
  Serious: Yes (Hospitalization, Other)
  Sender: FDA-Public Use
  Company Number: US-TAKEDA-US201945988

PATIENT
  Age: 54 Year
  Sex: Female

DRUGS (20)
  1. TEDUGLUTIDE [Suspect]
     Active Substance: TEDUGLUTIDE
     Indication: SHORT-BOWEL SYNDROME
     Dosage: 3.1 MILLIGRAM, QD
     Route: 065
     Dates: start: 20130906, end: 20140226
  2. TEDUGLUTIDE [Suspect]
     Active Substance: TEDUGLUTIDE
     Indication: SHORT-BOWEL SYNDROME
     Dosage: 3.1 MILLIGRAM, QD
     Route: 065
     Dates: start: 20130906, end: 20140226
  3. TEDUGLUTIDE [Suspect]
     Active Substance: TEDUGLUTIDE
     Indication: SHORT-BOWEL SYNDROME
     Dosage: 3.1 MILLIGRAM, QD
     Route: 065
     Dates: start: 20130906, end: 20140226
  4. TEDUGLUTIDE [Suspect]
     Active Substance: TEDUGLUTIDE
     Dosage: 3.1 MILLIGRAM, QD
     Route: 065
     Dates: start: 20140929, end: 20190321
  5. TEDUGLUTIDE [Suspect]
     Active Substance: TEDUGLUTIDE
     Dosage: 3.5 MILLIGRAM, QD
     Route: 065
     Dates: start: 20190321, end: 20190408
  6. TEDUGLUTIDE [Suspect]
     Active Substance: TEDUGLUTIDE
     Dosage: 4.2 MILLIGRAM, QD
     Route: 065
     Dates: start: 20190408
  7. VANCOMYCIN [Concomitant]
     Active Substance: VANCOMYCIN
     Dosage: 750 MILLIGRAM, BID
     Route: 042
     Dates: start: 20191207, end: 20191207
  8. TEDUGLUTIDE [Suspect]
     Active Substance: TEDUGLUTIDE
     Dosage: 3.1 MILLIGRAM, QD
     Route: 065
     Dates: start: 20140929, end: 20190321
  9. TEDUGLUTIDE [Suspect]
     Active Substance: TEDUGLUTIDE
     Dosage: 3.1 MILLIGRAM, QD
     Route: 065
     Dates: start: 20140929, end: 20190321
  10. TEDUGLUTIDE [Suspect]
     Active Substance: TEDUGLUTIDE
     Dosage: 3.5 MILLIGRAM, QD
     Route: 065
     Dates: start: 20190321, end: 20190408
  11. TEDUGLUTIDE [Suspect]
     Active Substance: TEDUGLUTIDE
     Dosage: 3.5 MILLIGRAM, QD
     Route: 065
     Dates: start: 20190321, end: 20190408
  12. TEDUGLUTIDE [Suspect]
     Active Substance: TEDUGLUTIDE
     Dosage: 3.1 MILLIGRAM, QD
     Route: 065
     Dates: start: 20140929, end: 20190321
  13. TEDUGLUTIDE [Suspect]
     Active Substance: TEDUGLUTIDE
     Dosage: 3.5 MILLIGRAM, QD
     Route: 065
     Dates: start: 20190321, end: 20190408
  14. TEDUGLUTIDE [Suspect]
     Active Substance: TEDUGLUTIDE
     Dosage: 4.2 MILLIGRAM, QD
     Route: 065
     Dates: start: 20190408
  15. TEDUGLUTIDE [Suspect]
     Active Substance: TEDUGLUTIDE
     Dosage: 4.2 MILLIGRAM, QD
     Route: 065
     Dates: start: 20190408
  16. PROMETHAZINE [Concomitant]
     Active Substance: PROMETHAZINE HYDROCHLORIDE
     Indication: NAUSEA
     Dosage: 12.50 MILLIGRAM, QID
     Route: 042
     Dates: start: 20181203
  17. VANCOMYCIN [Concomitant]
     Active Substance: VANCOMYCIN
     Indication: DEVICE RELATED INFECTION
     Dosage: 500 MILLIGRAM, BID
     Route: 042
     Dates: start: 20191204, end: 20191206
  18. TEDUGLUTIDE [Suspect]
     Active Substance: TEDUGLUTIDE
     Indication: SHORT-BOWEL SYNDROME
     Dosage: 3.1 MILLIGRAM, QD
     Route: 065
     Dates: start: 20130906, end: 20140226
  19. TEDUGLUTIDE [Suspect]
     Active Substance: TEDUGLUTIDE
     Dosage: 4.2 MILLIGRAM, QD
     Route: 065
     Dates: start: 20190408
  20. ROCEPHIN [Concomitant]
     Active Substance: CEFTRIAXONE SODIUM
     Indication: DEVICE RELATED INFECTION
     Dosage: 2 GRAM, QD
     Route: 042
     Dates: start: 20191207, end: 20200118

REACTIONS (2)
  - Vitamin D deficiency [Recovered/Resolved]
  - Device related infection [Recovered/Resolved]

NARRATIVE: CASE EVENT DATE: 20190321
